FAERS Safety Report 4598589-5 (Version None)
Quarter: 2005Q1

REPORT INFORMATION
  Report Type: 
  Country: None (occurrence: None)
  Receive Date: 20050304
  Receipt Date: 20050222
  Transmission Date: 20050727
  Serious: Yes (Hospitalization)
  Sender: FDA-Public Use
  Company Number: PH-ROCHE-396222

PATIENT
  Age: 45 Year
  Sex: Female
  Weight: 61.2 kg

DRUGS (1)
  1. BONDRONAT [Suspect]
     Indication: DRUG USE FOR UNKNOWN INDICATION
     Route: 042
     Dates: start: 20050118

REACTIONS (1)
  - PAIN [None]
